FAERS Safety Report 12612415 (Version 2)
Quarter: 2016Q3

REPORT INFORMATION
  Report Type: Spontaneous
  Country: US (occurrence: US)
  Receive Date: 20160801
  Receipt Date: 20160915
  Transmission Date: 20161109
  Serious: No
  Sender: FDA-Public Use
  Company Number: US-SHIRE-US201608387

PATIENT
  Sex: Male
  Weight: 21.77 kg

DRUGS (2)
  1. ADDERALL XR [Suspect]
     Active Substance: AMPHETAMINE ASPARTATE\AMPHETAMINE SULFATE\DEXTROAMPHETAMINE SACCHARATE\DEXTROAMPHETAMINE SULFATE
     Indication: ATTENTION DEFICIT/HYPERACTIVITY DISORDER
     Dosage: 15 MG, 1X/DAY:QD
     Route: 048
     Dates: start: 2016
  2. CHILDRENS VITAMINS [Concomitant]
     Indication: SUPPLEMENTATION THERAPY
     Dosage: 2 DF, OTHER (SOMETIMES DAILY)
     Route: 048

REACTIONS (7)
  - Psychomotor hyperactivity [Unknown]
  - Auditory disorder [Unknown]
  - Decreased appetite [Unknown]
  - Drug dose omission [Unknown]
  - Weight decreased [Unknown]
  - Drug effect increased [Unknown]
  - Disturbance in social behaviour [Unknown]

NARRATIVE: CASE EVENT DATE: 2016
